FAERS Safety Report 16841426 (Version 1)
Quarter: 2019Q3

REPORT INFORMATION
  Report Type: Spontaneous
  Country: JP (occurrence: JP)
  Receive Date: 20190923
  Receipt Date: 20190923
  Transmission Date: 20191005
  Serious: Yes (Hospitalization)
  Sender: FDA-Public Use
  Company Number: JP-PFIZER INC-2019005279

PATIENT
  Sex: Female
  Weight: 31 kg

DRUGS (2)
  1. VFEND [Suspect]
     Active Substance: VORICONAZOLE
     Indication: BRONCHOPULMONARY ASPERGILLOSIS
     Dosage: 200 MG, DAILY
     Route: 048
     Dates: start: 20181108
  2. VFEND [Suspect]
     Active Substance: VORICONAZOLE
     Dosage: 100 MG, DAILY
     Route: 048
     Dates: start: 20190308

REACTIONS (5)
  - Epistaxis [Unknown]
  - Nervous system disorder [Unknown]
  - Peripheral coldness [Unknown]
  - Pruritus [Unknown]
  - Accommodation disorder [Unknown]

NARRATIVE: CASE EVENT DATE: 20190301
